FAERS Safety Report 14336514 (Version 1)
Quarter: 2017Q4

REPORT INFORMATION
  Report Type: Spontaneous
  Country: FR (occurrence: FR)
  Receive Date: 20171229
  Receipt Date: 20171229
  Transmission Date: 20180321
  Serious: Yes (Hospitalization)
  Sender: FDA-Public Use
  Company Number: FR-BRISTOL-MYERS SQUIBB COMPANY-BMS-2017-116842

PATIENT
  Age: 36 Year
  Sex: Female

DRUGS (3)
  1. BACLOFENE [Suspect]
     Active Substance: BACLOFEN
     Indication: BACK PAIN
     Route: 048
  2. LYRICA [Suspect]
     Active Substance: PREGABALIN
     Indication: BACK PAIN
     Route: 048
  3. KENACORT [Suspect]
     Active Substance: TRIAMCINOLONE
     Indication: BACK PAIN
     Route: 024

REACTIONS (3)
  - Product use in unapproved indication [Unknown]
  - Somnolence [Recovered/Resolved]
  - Product use issue [Unknown]

NARRATIVE: CASE EVENT DATE: 20170919
